FAERS Safety Report 9682180 (Version 2)
Quarter: 2013Q4

REPORT INFORMATION
  Report Type: Spontaneous
  Country: SE (occurrence: SE)
  Receive Date: 20131111
  Receipt Date: 20131125
  Transmission Date: 20140711
  Serious: Yes (Other)
  Sender: FDA-Public Use
  Company Number: SE-009507513-1311SWE002837

PATIENT
  Sex: Female
  Weight: 82 kg

DRUGS (1)
  1. NEXPLANON [Suspect]
     Dosage: UNK
     Route: 059
     Dates: start: 201105, end: 20131023

REACTIONS (3)
  - Abortion spontaneous [Unknown]
  - Unintended pregnancy [Recovered/Resolved]
  - Device breakage [Unknown]
